FAERS Safety Report 5894947-7 (Version None)
Quarter: 2008Q3

REPORT INFORMATION
  Report Type: 
  Country: None (occurrence: None)
  Receive Date: 20080924
  Receipt Date: 20080918
  Transmission Date: 20090109
  Serious: Yes (Other)
  Sender: FDA-Public Use
  Company Number: PHHY2008BR21954

PATIENT
  Sex: Female

DRUGS (1)
  1. CATAFLAM [Suspect]
     Indication: TOOTHACHE
     Dosage: UNK

REACTIONS (2)
  - BACK PAIN [None]
  - OSTEOPOROSIS [None]
